FAERS Safety Report 7388398-6 (Version None)
Quarter: 2011Q2

REPORT INFORMATION
  Report Type: 
  Country: None (occurrence: None)
  Receive Date: 20110401
  Receipt Date: 20110324
  Transmission Date: 20111010
  Serious: Yes (Other)
  Sender: FDA-Public Use
  Company Number: BR-US-EMD SERONO, INC.-7050808

PATIENT
  Sex: Female

DRUGS (4)
  1. TEGRETOL [Concomitant]
  2. ALBENDAZOLE [Concomitant]
  3. REBIF [Suspect]
     Indication: RELAPSING-REMITTING MULTIPLE SCLEROSIS
     Dates: start: 20060127
  4. RANITIDINE [Concomitant]

REACTIONS (4)
  - HEADACHE [None]
  - BLINDNESS [None]
  - MULTIPLE SCLEROSIS RELAPSE [None]
  - VISION BLURRED [None]
